FAERS Safety Report 5787324-0 (Version None)
Quarter: 2008Q2

REPORT INFORMATION
  Report Type: 
  Country: None (occurrence: None)
  Receive Date: 20080620
  Receipt Date: 20080606
  Transmission Date: 20081010
  Serious: Yes (Hospitalization)
  Sender: FDA-Public Use
  Company Number: 2008AL005036

PATIENT
  Age: 61 Year
  Sex: Male
  Weight: 64.4108 kg

DRUGS (1)
  1. DIGOXIN [Suspect]

REACTIONS (7)
  - CARDIAC DISORDER [None]
  - CARDIAC FAILURE CONGESTIVE [None]
  - CHOLECYSTECTOMY [None]
  - DIVERTICULITIS [None]
  - RENAL DISORDER [None]
  - RENAL FAILURE [None]
  - SEPSIS [None]
